FAERS Safety Report 6491783-8 (Version None)
Quarter: 2009Q4

REPORT INFORMATION
  Report Type: 
  Country: None (occurrence: None)
  Receive Date: 20091210
  Receipt Date: 20091202
  Transmission Date: 20100525
  Serious: Yes (Hospitalization, Other)
  Sender: FDA-Public Use
  Company Number: 2009SP037698

PATIENT
  Age: 74 Year
  Sex: Female
  Weight: 52.1637 kg

DRUGS (29)
  1. MIRALAX [Suspect]
     Indication: CONSTIPATION
     Dosage: 17 GM;BID;PO
     Route: 048
     Dates: start: 20070701
  2. MIRALAX [Suspect]
     Indication: DRUG USE FOR UNKNOWN INDICATION
     Dosage: 17 GM;BID;PO
     Route: 048
     Dates: start: 20070701
  3. TYSABRI [Concomitant]
  4. TYLENOL (CAPLET) [Concomitant]
  5. CLARITIN [Concomitant]
  6. COZAAR [Concomitant]
  7. LOPRESSOR [Concomitant]
  8. NORVASC [Concomitant]
  9. HYDROCHLOROTHIAZIDE [Concomitant]
  10. NEURONTIN [Concomitant]
  11. OXYCONTIN [Concomitant]
  12. NORTRIPTYLINE HCL [Concomitant]
  13. VALIUM [Concomitant]
  14. LORCET-HD [Concomitant]
  15. SENOKOT /00142201/ [Concomitant]
  16. PRETZ [Concomitant]
  17. AFRIN [Concomitant]
  18. ASPIRIN [Concomitant]
  19. SPIRIVA [Concomitant]
  20. NEXIUM [Concomitant]
  21. EXCEDRIN /00110301/ [Concomitant]
  22. CLINDAMYCIN [Concomitant]
  23. MULTI-VITAMINS [Concomitant]
  24. VITAMIN E /00110501/ [Concomitant]
  25. VITAMIN C /00008001/ [Concomitant]
  26. VITAMIN A [Concomitant]
  27. CALCIUM 600 PLUS VITAMIN D [Concomitant]
  28. BETA CAROTENE /00540801/ [Concomitant]
  29. FOLIC ACID [Concomitant]

REACTIONS (5)
  - BLOOD GLUCOSE INCREASED [None]
  - DRUG INEFFECTIVE [None]
  - DYSPNOEA [None]
  - FLATULENCE [None]
  - LOSS OF CONSCIOUSNESS [None]
